FAERS Safety Report 18790103 (Version 3)
Quarter: 2021Q1

REPORT INFORMATION
  Report Type: Spontaneous
  Country: PR (occurrence: PR)
  Receive Date: 20210126
  Receipt Date: 20210318
  Transmission Date: 20210419
  Serious: No
  Sender: FDA-Public Use
  Company Number: US-PFIZER INC-2021040355

PATIENT
  Age: 45 Year
  Sex: Female

DRUGS (1)
  1. GENOTROPIN [Suspect]
     Active Substance: SOMATROPIN
     Dosage: 0.2 MG, DAILY (X7 DAYS A WEEK)

REACTIONS (3)
  - Drug dose omission by device [Unknown]
  - Headache [Unknown]
  - Device breakage [Unknown]
